FAERS Safety Report 21274934 (Version 2)
Quarter: 2022Q3

REPORT INFORMATION
  Report Type: Other
  Country: KR (occurrence: None)
  Receive Date: 20220831
  Receipt Date: 20220905
  Transmission Date: 20221027
  Serious: Yes (Death, Hospitalization)
  Sender: FDA-Public Use
  Company Number: KR-ROCHE-3126858

PATIENT
  Age: 69 Year
  Sex: Male

DRUGS (8)
  1. ATEZOLIZUMAB [Suspect]
     Active Substance: ATEZOLIZUMAB
     Indication: Small cell lung cancer extensive stage
     Dosage: LAST DOSE DATE: 30/MAY/2022,14/JUL/2022
     Route: 065
     Dates: start: 20211210
  2. MOVIZOLO [Concomitant]
     Dates: start: 20220226
  3. SILODOSIN [Concomitant]
     Active Substance: SILODOSIN
     Dates: start: 20220129, end: 20220731
  4. SILODOSIN [Concomitant]
     Active Substance: SILODOSIN
     Dates: start: 20211205, end: 20220731
  5. ONEALFA [Concomitant]
     Active Substance: ALFACALCIDOL
     Dosage: 1PK
     Dates: start: 20220129, end: 20220731
  6. ONEALFA [Concomitant]
     Active Substance: ALFACALCIDOL
     Dosage: 1PK
     Dates: start: 20211205, end: 20220731
  7. MEGACE [Concomitant]
     Active Substance: MEGESTROL ACETATE
  8. PROMAC (SOUTH KOREA) [Concomitant]
     Dates: start: 20220215

REACTIONS (2)
  - Dyspnoea [Fatal]
  - Arteriosclerosis [Not Recovered/Not Resolved]

NARRATIVE: CASE EVENT DATE: 20220725
